FAERS Safety Report 19509786 (Version 3)
Quarter: 2021Q3

REPORT INFORMATION
  Report Type: Report from Study
  Country: NL (occurrence: NL)
  Receive Date: 20210708
  Receipt Date: 20210819
  Transmission Date: 20211014
  Serious: Yes (Hospitalization)
  Sender: FDA-Public Use
  Company Number: NL-PFIZER INC-2021820072

PATIENT
  Age: 82 Year
  Sex: Male
  Weight: 74 kg

DRUGS (13)
  1. LEUCOVORIN. [Suspect]
     Active Substance: LEUCOVORIN
     Indication: NEOPLASM
     Dosage: 400 MG/M2, D1 AND D15 OF 28?DAY CYCLE
     Route: 042
     Dates: start: 20210611, end: 20210611
  2. ENALAPRIL [Concomitant]
     Active Substance: ENALAPRIL
     Indication: HYPERTENSION
     Dosage: 20 MG, 1 IN 1 D
     Route: 048
     Dates: start: 2017
  3. ABBV?621 [Suspect]
     Active Substance: EFTOZANERMIN ALFA
     Indication: NEOPLASM
     Dosage: 3.75 MG/KG, DAY 1 OF 21?DAY CYCLE
     Route: 042
     Dates: start: 20210611, end: 20210611
  4. ABBV?621 [Suspect]
     Active Substance: EFTOZANERMIN ALFA
     Dosage: 3.75 MG/KG, DAY 1 OF 21?DAY CYCLE
     Route: 042
     Dates: start: 20210612
  5. 5?FU [Suspect]
     Active Substance: FLUOROURACIL
     Dosage: 400 MG/M2, D1 AND D15 OF 28?DAY CYCLE
     Route: 042
     Dates: start: 20210712
  6. 5?FU [Suspect]
     Active Substance: FLUOROURACIL
     Indication: NEOPLASM
     Dosage: 400 MG/M2, D1 AND D15 OF 28?DAY CYCLE
     Route: 042
     Dates: start: 20210611, end: 20210611
  7. 5?FU [Suspect]
     Active Substance: FLUOROURACIL
     Dosage: 400 MG/M2, D1 AND D15 OF 28?DAY CYCLE
     Route: 042
     Dates: start: 20210611, end: 20210613
  8. LERCANIDIPINE [Concomitant]
     Active Substance: LERCANIDIPINE
     Indication: HYPERTENSION
     Dosage: 20 MG, 1 IN 1 D
     Route: 048
     Dates: start: 20210131
  9. METOCLOPRAMIDE. [Concomitant]
     Active Substance: METOCLOPRAMIDE
     Indication: NAUSEA
     Dosage: 10 MG, AS NEEDED/REQUIRED
     Route: 048
     Dates: start: 20210618
  10. IRINOTECAN HCL [Suspect]
     Active Substance: IRINOTECAN HYDROCHLORIDE
     Indication: NEOPLASM
     Dosage: 180 MG/M2, D1 AND D15 OF 28?DAY CYCLE
     Route: 042
     Dates: start: 20210611, end: 20210611
  11. IRINOTECAN HCL [Suspect]
     Active Substance: IRINOTECAN HYDROCHLORIDE
     Dosage: 180 MG/M2, D1 AND D15 OF 28?DAY CYCLE
     Route: 042
     Dates: start: 20210612
  12. METOCLOPRAMIDE. [Concomitant]
     Active Substance: METOCLOPRAMIDE
     Indication: VOMITING
  13. LOPERAMIDE [Concomitant]
     Active Substance: LOPERAMIDE
     Indication: DIARRHOEA
     Dosage: 2 MG, AS NEEDED/REQUIRED
     Route: 048
     Dates: start: 20210618

REACTIONS (1)
  - Malaise [Recovered/Resolved]

NARRATIVE: CASE EVENT DATE: 20210620
